FAERS Safety Report 7594902-5 (Version None)
Quarter: 2011Q2

REPORT INFORMATION
  Report Type: 
  Country: None (occurrence: None)
  Receive Date: 20110615
  Receipt Date: 20100713
  Transmission Date: 20111010
  Serious: Yes (Disabling, Other)
  Sender: FDA-Public Use
  Company Number: WAES 1007USA01416

PATIENT
  Age: 61 Year
  Sex: Female

DRUGS (4)
  1. PROPYLTHIORACIL [Concomitant]
  2. COZAAR [Suspect]
     Indication: BLOOD PRESSURE
     Dosage: 50 MG/DAILY/PO
     Route: 048
     Dates: start: 19950101
  3. COZAAR [Suspect]
     Indication: BASEDOW'S DISEASE
     Dosage: 50 MG/DAILY/PO
     Route: 048
     Dates: start: 19950101
  4. NEXIUM [Concomitant]

REACTIONS (2)
  - HEADACHE [None]
  - DIZZINESS [None]
